FAERS Safety Report 16445219 (Version 1)
Quarter: 2019Q2

REPORT INFORMATION
  Report Type: Spontaneous
  Country: US (occurrence: US)
  Receive Date: 20190508
  Receipt Date: 20190508
  Transmission Date: 20190711
  Serious: Yes (Hospitalization)
  Sender: FDA-Public Use
  Company Number: None

PATIENT
  Age: 84 Year
  Sex: Male
  Weight: 63 kg

DRUGS (2)
  1. AZACITIDINE. [Suspect]
     Active Substance: AZACITIDINE
     Dosage: ?          OTHER FREQUENCY:MONTHLY (DAYS 1-7);?
     Route: 042
  2. PEMBROLIZUMAB. [Suspect]
     Active Substance: PEMBROLIZUMAB
     Dosage: ?          OTHER FREQUENCY:Q3 WEEKS ;?
     Route: 042

REACTIONS (7)
  - Acute febrile neutrophilic dermatosis [None]
  - Disease progression [None]
  - Mouth haemorrhage [None]
  - Streptobacillus test positive [None]
  - General physical health deterioration [None]
  - Memory impairment [None]
  - Rash [None]

NARRATIVE: CASE EVENT DATE: 20190420
